FAERS Safety Report 17285705 (Version 1)
Quarter: 2020Q1

REPORT INFORMATION
  Report Type: Spontaneous
  Country: US (occurrence: US)
  Receive Date: 20200118
  Receipt Date: 20200118
  Transmission Date: 20200409
  Serious: Yes (Other)
  Sender: FDA-Public Use
  Company Number: US-DRREDDYS-USA/USA/20/0118703

PATIENT
  Age: 77 Year
  Sex: Female

DRUGS (1)
  1. DECITABINE. [Suspect]
     Active Substance: DECITABINE
     Indication: ACUTE MYELOID LEUKAEMIA
     Route: 042

REACTIONS (6)
  - Clostridium difficile colitis [Recovering/Resolving]
  - Pleural effusion [Recovering/Resolving]
  - Thrombocytopenia [Recovered/Resolved]
  - Enterococcal infection [Recovering/Resolving]
  - Anaemia [Recovering/Resolving]
  - Urinary tract infection [Recovering/Resolving]
